FAERS Safety Report 5853660-2 (Version None)
Quarter: 2008Q3

REPORT INFORMATION
  Report Type: 
  Country: None (occurrence: None)
  Receive Date: 20080822
  Receipt Date: 20080813
  Transmission Date: 20090109
  Serious: Yes (Other)
  Sender: FDA-Public Use
  Company Number: US-ROCHE-570553

PATIENT
  Sex: Female
  Weight: 80.1 kg

DRUGS (10)
  1. BONIVA [Suspect]
     Indication: OSTEOPOROSIS
     Dosage: PREFILLED SYRINGE 3MG/3ML
     Route: 042
     Dates: start: 20080609, end: 20080811
  2. ADVIL LIQUI-GELS [Concomitant]
     Dosage: FORM REPORTED AS ORAL
     Route: 048
  3. METHOTREXATE SODIUM [Concomitant]
     Dosage: FORM REPORTED AS ORAL
     Route: 048
  4. FOLIC ACID [Concomitant]
     Dosage: FORM REPORTED AS ORAL
     Route: 048
  5. FOLIC ACID [Concomitant]
     Dosage: FORM REPORTED AS ORAL
     Route: 048
  6. PROTONIX [Concomitant]
     Indication: PANCREATITIS
     Dosage: FORM REPORTED AS ORAL
     Route: 048
  7. ZOCOR [Concomitant]
     Route: 048
  8. ZOCOR [Concomitant]
     Route: 048
  9. MIACALCIN [Concomitant]
     Dosage: 1 SPRAY DAILY IN ALTERNATIVE NOSTRILS
     Route: 065
  10. CITRACAL + D [Concomitant]
     Dosage: DOSAGE: 2 RECEIVED IN THE MORNING AND 1 IN EVENING
     Route: 048

REACTIONS (3)
  - BONE PAIN [None]
  - HEADACHE [None]
  - HYPOAESTHESIA [None]
